FAERS Safety Report 13395015 (Version 1)
Quarter: 2017Q1

REPORT INFORMATION
  Report Type: Spontaneous
  Country: US (occurrence: US)
  Receive Date: 20170331
  Receipt Date: 20170331
  Transmission Date: 20170429
  Serious: Yes (Hospitalization)
  Sender: FDA-Public Use
  Company Number: None

PATIENT
  Age: 18 Year
  Sex: Female
  Weight: 75.66 kg

DRUGS (1)
  1. CISPLATIN. [Suspect]
     Active Substance: CISPLATIN
     Dates: end: 20170316

REACTIONS (4)
  - Transverse sinus thrombosis [None]
  - Nausea [None]
  - Vomiting [None]
  - Hypophagia [None]

NARRATIVE: CASE EVENT DATE: 20170321
